FAERS Safety Report 4794544-0 (Version None)
Quarter: 2005Q3

REPORT INFORMATION
  Report Type: 
  Country: None (occurrence: None)
  Receive Date: 20050914
  Receipt Date: 20041012
  Transmission Date: 20060218
  Serious: Yes (Other)
  Sender: FDA-Public Use
  Company Number: 163-20785-04100326

PATIENT
  Age: 71 Year
  Sex: Male
  Weight: 84.369 kg

DRUGS (8)
  1. THALOMID [Suspect]
     Indication: MALIGNANT MELANOMA
     Dosage: 200 MG, DAILY, ORAL
     Route: 048
     Dates: start: 20040601, end: 20050103
  2. GM-CSF (GRANULOCYTE MACROPHAGE COLONY STIM FACTOR) [Suspect]
     Indication: MALIGNANT MELANOMA
     Dosage: 250 UG, DAILY X 14 DAYS; THEN QOD 14 DAYS, SUBCUTANEOUS
     Route: 058
     Dates: start: 20040601
  3. ACETYLSALICYLIC ACID SRT [Concomitant]
  4. FLOMAX [Concomitant]
  5. GLYCOLAX (MACROGOL) [Concomitant]
  6. ZOCOR [Concomitant]
  7. AVODART [Concomitant]
  8. PRILOSEC [Concomitant]

REACTIONS (2)
  - DEEP VEIN THROMBOSIS [None]
  - PROTHROMBIN TIME PROLONGED [None]
